FAERS Safety Report 4703932-X (Version None)
Quarter: 2005Q2

REPORT INFORMATION
  Report Type: 
  Country: None (occurrence: None)
  Receive Date: 20050630
  Receipt Date: 20050607
  Transmission Date: 20051028
  Serious: Yes (Hospitalization)
  Sender: FDA-Public Use
  Company Number: US-MERCK-0506USA01308

PATIENT
  Age: 65 Year
  Sex: Female

DRUGS (5)
  1. FOSAMAX [Suspect]
     Indication: OSTEOPOROSIS
     Route: 048
     Dates: start: 20050228, end: 20050501
  2. ZESTORETIC [Concomitant]
     Route: 065
  3. LIPITOR [Concomitant]
     Route: 065
  4. PLAVIX [Concomitant]
     Route: 065
  5. ECOTRIN [Concomitant]
     Route: 065

REACTIONS (3)
  - DIZZINESS [None]
  - HYPERTENSION [None]
  - TENDONITIS [None]
